FAERS Safety Report 5186054-6 (Version None)
Quarter: 2006Q4

REPORT INFORMATION
  Report Type: 
  Country: None (occurrence: None)
  Receive Date: 20061220
  Receipt Date: 20061018
  Transmission Date: 20070319
  Serious: No
  Sender: FDA-Public Use
  Company Number: US-GLAXOSMITHKLINE-A0624004A

PATIENT
  Age: 52 Year

DRUGS (1)
  1. NICODERM CQ [Suspect]
     Dates: start: 20061018

REACTIONS (3)
  - DISTURBANCE IN ATTENTION [None]
  - DIZZINESS [None]
  - NICOTINE DEPENDENCE [None]
